FAERS Safety Report 23905930 (Version 1)
Quarter: 2024Q2

REPORT INFORMATION
  Report Type: Spontaneous
  Country: CN (occurrence: CN)
  Receive Date: 20240527
  Receipt Date: 20240527
  Transmission Date: 20240716
  Serious: Yes (Other)
  Sender: FDA-Public Use
  Company Number: CN-ELI_LILLY_AND_COMPANY-CN202405009354

PATIENT
  Sex: Female

DRUGS (3)
  1. HUMULIN 70/30 [Suspect]
     Active Substance: INSULIN HUMAN
     Indication: Diabetes mellitus
     Dosage: 20 U, BID (EACH MORNING AND EVENING)
     Route: 058
     Dates: start: 2005
  2. HUMULIN 70/30 [Suspect]
     Active Substance: INSULIN HUMAN
     Dosage: 28 U, BID (EACH MORNING AND EVENING)
     Route: 058
  3. HUMULIN 70/30 [Suspect]
     Active Substance: INSULIN HUMAN
     Dosage: 22 U, BID (20 OR 22 UNITS EACH MORNING AND EVENING)
     Route: 058
     Dates: start: 20240510

REACTIONS (7)
  - Presbyopia [Unknown]
  - Myopia [Unknown]
  - Eye disorder [Unknown]
  - Cataract [Unknown]
  - Injection site discomfort [Unknown]
  - Injection site pain [Unknown]
  - Incorrect dose administered [Unknown]

NARRATIVE: CASE EVENT DATE: 20240512
